FAERS Safety Report 23305604 (Version 1)
Quarter: 2023Q4

REPORT INFORMATION
  Report Type: Spontaneous
  Country: BR (occurrence: BR)
  Receive Date: 20231218
  Receipt Date: 20231218
  Transmission Date: 20240109
  Serious: Yes (Other)
  Sender: FDA-Public Use
  Company Number: BR-BRISTOL-MYERS SQUIBB COMPANY-2023-182592

PATIENT
  Age: 80 Year
  Sex: Female

DRUGS (1)
  1. ELIQUIS [Suspect]
     Active Substance: APIXABAN
     Indication: Cerebrovascular accident prophylaxis
     Dates: start: 2013

REACTIONS (6)
  - Neoplasm malignant [Unknown]
  - Cardiac valve disease [Unknown]
  - Ovarian disorder [Unknown]
  - Thyroid disorder [Unknown]
  - Gait inability [Unknown]
  - Arthralgia [Recovered/Resolved]
